FAERS Safety Report 15291527 (Version 4)
Quarter: 2019Q1

REPORT INFORMATION
  Report Type: Report from Study
  Country: US (occurrence: US)
  Receive Date: 20180817
  Receipt Date: 20190118
  Transmission Date: 20190417
  Serious: Yes (Other)
  Sender: FDA-Public Use
  Company Number: US-ACTELION-A-NJ2018-177434

PATIENT
  Age: 67 Year
  Sex: Female
  Weight: 80.27 kg

DRUGS (4)
  1. TADALAFIL. [Concomitant]
     Active Substance: TADALAFIL
  2. OXYGEN. [Concomitant]
     Active Substance: OXYGEN
     Dosage: 3 LITERS AT NIGHT
  3. OPSUMIT [Suspect]
     Active Substance: MACITENTAN
     Indication: PULMONARY ARTERIAL HYPERTENSION
     Dosage: 10 MG, QD
     Route: 048
  4. ADCIRCA [Concomitant]
     Active Substance: TADALAFIL

REACTIONS (15)
  - Syncope [Unknown]
  - Vaginal haemorrhage [Recovered/Resolved]
  - Dyspnoea [Unknown]
  - Fall [Unknown]
  - Loss of consciousness [Unknown]
  - Concussion [Unknown]
  - Exercise tolerance decreased [Unknown]
  - Ankle fracture [Unknown]
  - Chest pain [Unknown]
  - Dyspnoea exertional [Unknown]
  - Ligament sprain [Unknown]
  - Muscle strain [Unknown]
  - Cough [Unknown]
  - Oedema peripheral [Unknown]
  - Fatigue [Unknown]

NARRATIVE: CASE EVENT DATE: 201807
